FAERS Safety Report 12054262 (Version 2)
Quarter: 2016Q1

REPORT INFORMATION
  Report Type: Spontaneous
  Country: US (occurrence: US)
  Receive Date: 20160209
  Receipt Date: 20160316
  Transmission Date: 20160526
  Serious: Yes (Hospitalization)
  Sender: FDA-Public Use
  Company Number: US-JNJFOC-20160200858

PATIENT
  Sex: Female
  Weight: 58.97 kg

DRUGS (2)
  1. REMICADE [Suspect]
     Active Substance: INFLIXIMAB
     Indication: RHEUMATOID ARTHRITIS
     Dosage: EVERY 4-5 WEEKS
     Route: 042
  2. REMICADE [Suspect]
     Active Substance: INFLIXIMAB
     Indication: RHEUMATOID ARTHRITIS
     Route: 042
     Dates: end: 201512

REACTIONS (5)
  - Nasopharyngitis [Not Recovered/Not Resolved]
  - Oesophageal injury [Unknown]
  - Pharyngeal disorder [Unknown]
  - Procedural complication [Unknown]
  - Peripheral swelling [Not Recovered/Not Resolved]
